FAERS Safety Report 5080355-8 (Version None)
Quarter: 2006Q3

REPORT INFORMATION
  Report Type: 
  Country: None (occurrence: None)
  Receive Date: 20060814
  Receipt Date: 20060814
  Transmission Date: 20061208
  Serious: Yes (Other)
  Sender: FDA-Public Use
  Company Number: None

PATIENT
  Age: 61 Year
  Sex: Female
  Weight: 51.7101 kg

DRUGS (3)
  1. LOVASTATIN [Suspect]
     Indication: BLOOD CHOLESTEROL INCREASED
     Dosage: 40 MG 2 TIMES A DAY PO
     Route: 048
     Dates: start: 20060715, end: 20060811
  2. LOVASTATIN [Suspect]
     Indication: MYOCARDIAL INFARCTION
     Dosage: 40 MG 2 TIMES A DAY PO
     Route: 048
     Dates: start: 20060715, end: 20060811
  3. NIASPAN [Suspect]
     Dosage: 1 GRAM 1 TIME A DAY PO
     Route: 048

REACTIONS (4)
  - BODY TEMPERATURE DECREASED [None]
  - FATIGUE [None]
  - GAIT DISTURBANCE [None]
  - PHARMACEUTICAL PRODUCT COMPLAINT [None]
